FAERS Safety Report 13648822 (Version 1)
Quarter: 2017Q2

REPORT INFORMATION
  Report Type: Report from Study
  Country: JP (occurrence: JP)
  Receive Date: 20170613
  Receipt Date: 20170613
  Transmission Date: 20170830
  Serious: Yes (Death, Other)
  Sender: FDA-Public Use
  Company Number: JP-TAKEDA-2015JNJ000216

PATIENT
  Age: 75 Year
  Sex: Male
  Weight: 60 kg

DRUGS (44)
  1. RITUXIMAB [Suspect]
     Active Substance: RITUXIMAB
     Dosage: 375 MG/M2, QD
     Route: 042
     Dates: start: 20100927, end: 20100927
  2. RITUXIMAB [Suspect]
     Active Substance: RITUXIMAB
     Dosage: 375 MG/M2, QD
     Route: 042
     Dates: start: 20101018, end: 20101018
  3. PREDNISONE. [Suspect]
     Active Substance: PREDNISONE
     Indication: MANTLE CELL LYMPHOMA
     Dosage: 100 MG/M2, QD
     Route: 048
     Dates: start: 20100705, end: 20100709
  4. PREDNISONE. [Suspect]
     Active Substance: PREDNISONE
     Dosage: 47.9 MG/M2, QD
     Route: 048
     Dates: start: 20100927, end: 20101001
  5. CYCLOPHOSPHAMIDE. [Suspect]
     Active Substance: CYCLOPHOSPHAMIDE
     Indication: MANTLE CELL LYMPHOMA
     Dosage: 750 MG/M2, QD
     Route: 042
     Dates: start: 20100705, end: 20100705
  6. MAGLAX [Concomitant]
     Active Substance: MAGNESIUM OXIDE
     Indication: CONSTIPATION PROPHYLAXIS
     Dosage: 500 MG, TID
     Route: 048
     Dates: start: 20100702, end: 20150202
  7. VELCADE [Suspect]
     Active Substance: BORTEZOMIB
     Indication: MANTLE CELL LYMPHOMA
     Dosage: 1.3 MG/M2, QD
     Route: 042
     Dates: start: 20100705, end: 20100712
  8. RITUXIMAB [Suspect]
     Active Substance: RITUXIMAB
     Dosage: 375 MG/M2, QD
     Route: 042
     Dates: start: 20100816, end: 20100816
  9. PREDNISONE. [Suspect]
     Active Substance: PREDNISONE
     Dosage: 100 MG/M2, UNK
     Route: 048
     Dates: start: 20100705, end: 20101022
  10. PREDNISONE. [Suspect]
     Active Substance: PREDNISONE
     Dosage: 47.6 MG/M2, QD
     Route: 048
     Dates: start: 20100906, end: 20100910
  11. PREDNISONE. [Suspect]
     Active Substance: PREDNISONE
     Dosage: 48.2 MG/M2, QD
     Route: 048
     Dates: start: 20101018, end: 20101022
  12. PANTETHINE [Concomitant]
     Active Substance: PANTETHINE
     Indication: CONSTIPATION PROPHYLAXIS
     Dosage: 500 MG, TID
     Route: 048
     Dates: start: 20100702, end: 20150202
  13. RITUXIMAB [Suspect]
     Active Substance: RITUXIMAB
     Indication: MANTLE CELL LYMPHOMA
     Dosage: 375 MG/M2, QD
     Route: 042
     Dates: start: 20100705, end: 20101018
  14. RITUXIMAB [Suspect]
     Active Substance: RITUXIMAB
     Dosage: 375 MG/M2, QD
     Route: 042
     Dates: start: 20100906, end: 20100906
  15. PREDNISONE. [Suspect]
     Active Substance: PREDNISONE
     Dosage: 47.3 MG/M2, QD
     Route: 048
     Dates: start: 20100726, end: 20100730
  16. PREDNISONE. [Suspect]
     Active Substance: PREDNISONE
     Dosage: 47.3 MG/M2, QD
     Route: 048
     Dates: start: 20100816, end: 20100820
  17. DOXORUBICIN [Suspect]
     Active Substance: DOXORUBICIN
     Dosage: 28.1 MG/M2, QD
     Route: 042
     Dates: start: 20101018, end: 20101018
  18. BERIZYM                            /01945301/ [Concomitant]
     Indication: PROPHYLAXIS AGAINST GASTROINTESTINAL ULCER
     Dosage: 1 MG, TID
     Route: 065
     Dates: start: 20100820, end: 20141204
  19. CALONAL [Concomitant]
     Active Substance: ACETAMINOPHEN
     Indication: TUMOUR PAIN
     Dosage: 0.4 G, QID
     Route: 048
     Dates: start: 20141018, end: 20150114
  20. CYCLOPHOSPHAMIDE. [Suspect]
     Active Substance: CYCLOPHOSPHAMIDE
     Dosage: 421.9 MG/M2, QD
     Route: 042
     Dates: start: 20101018, end: 20101018
  21. DOXORUBICIN [Suspect]
     Active Substance: DOXORUBICIN
     Indication: MANTLE CELL LYMPHOMA
     Dosage: 50 MG/M2, QD
     Route: 042
     Dates: start: 20100705, end: 20100705
  22. SELBEX [Concomitant]
     Active Substance: TEPRENONE
     Indication: PRODUCT USED FOR UNKNOWN INDICATION
     Dosage: 0.5 G, TID
     Dates: end: 20141204
  23. VELCADE [Suspect]
     Active Substance: BORTEZOMIB
     Dosage: 1 MG/M2, QD
     Route: 042
     Dates: start: 20100726
  24. URIEF [Concomitant]
     Active Substance: SILODOSIN
     Indication: BENIGN PROSTATIC HYPERPLASIA
     Dosage: 4 MG, BID
     Route: 048
     Dates: end: 20150202
  25. ALOSITOL [Concomitant]
     Active Substance: ALLOPURINOL
     Indication: HYPERURICAEMIA
     Dosage: 100 MG, QD
     Route: 048
     Dates: start: 20110406, end: 20150202
  26. PARIET [Concomitant]
     Active Substance: RABEPRAZOLE SODIUM
     Indication: PROPHYLAXIS AGAINST GASTROINTESTINAL ULCER
     Dosage: 10 MG, QD
     Route: 048
     Dates: start: 20141027, end: 20150202
  27. VELCADE [Suspect]
     Active Substance: BORTEZOMIB
     Dosage: 1 MG, QD
     Route: 042
     Dates: start: 20100927
  28. DOXORUBICIN [Suspect]
     Active Substance: DOXORUBICIN
     Dosage: 37.5 MG/M2, QD
     Route: 042
     Dates: start: 20100726, end: 20100726
  29. DOXORUBICIN [Suspect]
     Active Substance: DOXORUBICIN
     Dosage: 37.5 MG/M2, QD
     Route: 042
     Dates: start: 20100816, end: 20100816
  30. DOXORUBICIN [Suspect]
     Active Substance: DOXORUBICIN
     Dosage: 37.5 MG/M2, QD
     Route: 042
     Dates: start: 20100906, end: 20100906
  31. DOXORUBICIN [Suspect]
     Active Substance: DOXORUBICIN
     Dosage: 37.5 MG/M2, QD
     Route: 042
     Dates: start: 20100927, end: 20100927
  32. URSO [Concomitant]
     Active Substance: URSODIOL
     Indication: PRODUCT USED FOR UNKNOWN INDICATION
     Dosage: 100 MG, TID
     Route: 048
     Dates: end: 20141204
  33. ATELEC [Concomitant]
     Active Substance: CILNIDIPINE
     Indication: HYPERTENSION
     Dosage: 5 MG, QD
     Route: 048
     Dates: start: 20130704, end: 20150202
  34. VELCADE [Suspect]
     Active Substance: BORTEZOMIB
     Dosage: 1 MG/M2, QD
     Route: 042
     Dates: start: 20100823
  35. VELCADE [Suspect]
     Active Substance: BORTEZOMIB
     Dosage: 1 MG/M2, QD
     Route: 042
     Dates: start: 20101018, end: 20101021
  36. CYCLOPHOSPHAMIDE. [Suspect]
     Active Substance: CYCLOPHOSPHAMIDE
     Dosage: 562.5 MG/M2, QD
     Route: 042
     Dates: start: 20100726, end: 20100726
  37. LIPITOR [Concomitant]
     Active Substance: ATORVASTATIN CALCIUM
     Indication: HYPERLIPIDAEMIA
     Dosage: 5 MG, QD
     Route: 048
     Dates: start: 20131121, end: 20141211
  38. CHLORMADINONE ACETATE [Concomitant]
     Active Substance: CHLORMADINONE ACETATE
     Indication: BENIGN PROSTATIC HYPERPLASIA
     Dosage: 50 MG, QD
     Route: 048
     Dates: start: 20150202
  39. VELCADE [Suspect]
     Active Substance: BORTEZOMIB
     Dosage: 1 MG/M2, QD
     Route: 042
     Dates: start: 20100816
  40. RITUXIMAB [Suspect]
     Active Substance: RITUXIMAB
     Dosage: 375 MG/M2, QD
     Route: 042
     Dates: start: 20100726, end: 20100726
  41. CYCLOPHOSPHAMIDE. [Suspect]
     Active Substance: CYCLOPHOSPHAMIDE
     Dosage: 562.5 MG/M2, QD
     Route: 042
     Dates: start: 20100816, end: 20100816
  42. CYCLOPHOSPHAMIDE. [Suspect]
     Active Substance: CYCLOPHOSPHAMIDE
     Dosage: 562.5 MG/M2, QD
     Route: 042
     Dates: start: 20100906, end: 20100906
  43. CYCLOPHOSPHAMIDE. [Suspect]
     Active Substance: CYCLOPHOSPHAMIDE
     Dosage: 562.5 MG/M2, QD
     Route: 042
     Dates: start: 20100927, end: 20100927
  44. ATELEC [Concomitant]
     Active Substance: CILNIDIPINE
     Indication: RENAL DISORDER
     Dosage: UNK
     Route: 065

REACTIONS (1)
  - Gastric cancer [Not Recovered/Not Resolved]

NARRATIVE: CASE EVENT DATE: 20141028
